FAERS Safety Report 21056337 (Version 1)
Quarter: 2022Q3

REPORT INFORMATION
  Report Type: Spontaneous
  Country: US (occurrence: None)
  Receive Date: 20220707
  Receipt Date: 20220707
  Transmission Date: 20221027
  Serious: Yes (Hospitalization)
  Sender: FDA-Public Use
  Company Number: None

PATIENT
  Age: 58 Year
  Sex: Male

DRUGS (1)
  1. CAPECITABINE [Suspect]
     Active Substance: CAPECITABINE
     Dosage: 2500MG BID ORAL??DATE OF USSE: JULY 11, 2022
     Route: 048
     Dates: start: 202207

REACTIONS (2)
  - Anorectal operation [None]
  - Colon operation [None]

NARRATIVE: CASE EVENT DATE: 20220707
